FAERS Safety Report 9676887 (Version 2)
Quarter: 2014Q1

REPORT INFORMATION
  Report Type: Report from Study
  Country: AR (occurrence: AR)
  Receive Date: 20131107
  Receipt Date: 20140331
  Transmission Date: 20141002
  Serious: Yes (Other)
  Sender: FDA-Public Use
  Company Number: AR-US-EMD SERONO, INC.-7247312

PATIENT
  Sex: Female

DRUGS (3)
  1. REBIF [Suspect]
     Indication: MULTIPLE SCLEROSIS
     Dates: start: 20090102
  2. REBIF [Suspect]
     Dates: start: 20111118
  3. REBIF [Suspect]

REACTIONS (1)
  - Pneumothorax spontaneous [Recovered/Resolved]
